FAERS Safety Report 8866471 (Version 1)
Quarter: 2012Q4

REPORT INFORMATION
  Report Type: 
  Country: US (occurrence: US)
  Receive Date: 20121025
  Receipt Date: 20121025
  Transmission Date: 20130627
  Serious: Yes (Other)
  Sender: FDA-Public Use
  Company Number: US-ASTRAZENECA-2012SE80029

PATIENT
  Sex: Female
  Weight: 85.7 kg

DRUGS (8)
  1. SEROQUEL [Suspect]
     Route: 048
     Dates: start: 20111020
  2. TEGRETOL XR [Suspect]
     Route: 048
     Dates: start: 20121004
  3. ADVIL,MOTRIN [Suspect]
     Indication: PAIN
     Dosage: 1 TABLET, THREE TIMES DAILY AS NEEDED
     Route: 048
     Dates: start: 20120222
  4. AMBIEN [Suspect]
     Indication: SLEEP DISORDER
     Dosage: 1 TABLET AT NIGHT, AS NEEDED
     Route: 048
     Dates: start: 20121004
  5. VICODIN [Suspect]
     Indication: PAIN
     Dosage: 5-500 MG, EVERY 4 TO 6  HOURS AS NEEDED
     Route: 048
     Dates: start: 20120924
  6. PATANOL [Suspect]
     Dosage: 1 DROP INTO BOTH EYES, TWO TIMES A DAY
     Route: 047
     Dates: start: 20111129
  7. ELAVIL [Suspect]
     Indication: SLEEP DISORDER
     Dosage: 1-2 TABLETS NIGHTLY AT BEDTIME AS NEEDED
     Route: 048
     Dates: start: 20111021
  8. NARCOTICS [Concomitant]

REACTIONS (4)
  - Joint injury [Unknown]
  - Type V hyperlipidaemia [Not Recovered/Not Resolved]
  - Bipolar disorder [Not Recovered/Not Resolved]
  - Breast mass [Not Recovered/Not Resolved]
